FAERS Safety Report 15794208 (Version 4)
Quarter: 2019Q1

REPORT INFORMATION
  Report Type: Spontaneous
  Country: FR (occurrence: FR)
  Receive Date: 20190107
  Receipt Date: 20190208
  Transmission Date: 20190417
  Serious: Yes (Life-Threatening, Other)
  Sender: FDA-Public Use
  Company Number: FR-PFIZER INC-2019002482

PATIENT
  Age: 63 Year
  Sex: Female

DRUGS (28)
  1. EXEMESTANE. [Suspect]
     Active Substance: EXEMESTANE
     Dosage: UNK
  2. NAVELBINE [Concomitant]
     Active Substance: VINORELBINE TARTRATE
     Indication: BREAST CANCER METASTATIC
     Dosage: UNK, (FOUR COURSES)
  3. PEGYLATED LIPOSOMAL DOXORUBICIN [Concomitant]
     Active Substance: DOXORUBICIN
     Indication: BREAST CANCER METASTATIC
     Dosage: UNK
  4. PEGYLATED LIPOSOMAL DOXORUBICIN [Concomitant]
     Active Substance: DOXORUBICIN
     Indication: METASTASES TO CENTRAL NERVOUS SYSTEM
  5. CARBOPLATIN/PEGYLATED LIPOSOMAL DOXORUBICIN HYDROCHLORIDE [Concomitant]
     Indication: BREAST CANCER METASTATIC
     Dosage: UNK
  6. ERIBULIN [Concomitant]
     Active Substance: ERIBULIN
     Indication: BREAST CANCER METASTATIC
     Dosage: UNK (FOUR COURSES)
  7. CARBOPLATIN. [Concomitant]
     Active Substance: CARBOPLATIN
     Indication: METASTASES TO BONE
  8. NAVELBINE [Concomitant]
     Active Substance: VINORELBINE TARTRATE
     Indication: METASTASES TO PERITONEUM
  9. ERIBULIN [Concomitant]
     Active Substance: ERIBULIN
     Indication: METASTASES TO CENTRAL NERVOUS SYSTEM
  10. ERIBULIN [Concomitant]
     Active Substance: ERIBULIN
     Indication: METASTASES TO SPLEEN
  11. ERIBULIN [Concomitant]
     Active Substance: ERIBULIN
     Indication: METASTASES TO PERITONEUM
  12. DENOSUMAB [Concomitant]
     Active Substance: DENOSUMAB
     Indication: BREAST CANCER METASTATIC
     Dosage: UNK
  13. AFINITOR [Suspect]
     Active Substance: EVEROLIMUS
     Indication: BREAST CANCER METASTATIC
     Dosage: UNK
  14. NAVELBINE [Concomitant]
     Active Substance: VINORELBINE TARTRATE
     Indication: METASTASES TO SPLEEN
  15. NAVELBINE [Concomitant]
     Active Substance: VINORELBINE TARTRATE
     Indication: METASTASES TO SKIN
  16. BEVACIZUMAB. [Concomitant]
     Active Substance: BEVACIZUMAB
     Indication: BREAST CANCER METASTATIC
     Dosage: UNK, (ONE YEAR)
  17. CARBOPLATIN. [Concomitant]
     Active Substance: CARBOPLATIN
     Indication: METASTASES TO SPLEEN
  18. ERIBULIN [Concomitant]
     Active Substance: ERIBULIN
     Indication: METASTASES TO SKIN
  19. CARBOPLATIN/PEGYLATED LIPOSOMAL DOXORUBICIN HYDROCHLORIDE [Concomitant]
     Indication: METASTASES TO CENTRAL NERVOUS SYSTEM
  20. CARBOPLATIN. [Concomitant]
     Active Substance: CARBOPLATIN
     Indication: METASTASES TO PERITONEUM
  21. NAVELBINE [Concomitant]
     Active Substance: VINORELBINE TARTRATE
     Indication: METASTASES TO BONE
  22. BEVACIZUMAB/PACLITAXEL [Concomitant]
     Indication: BREAST CANCER METASTATIC
     Dosage: UNK
  23. EXEMESTANE. [Suspect]
     Active Substance: EXEMESTANE
     Indication: BREAST CANCER METASTATIC
     Dosage: UNK, (FOR ONE YEAR)
  24. CARBOPLATIN. [Concomitant]
     Active Substance: CARBOPLATIN
     Indication: BREAST CANCER METASTATIC
     Dosage: UNK, (FOUR COURSES)
  25. CARBOPLATIN. [Concomitant]
     Active Substance: CARBOPLATIN
     Indication: METASTASES TO CENTRAL NERVOUS SYSTEM
  26. CARBOPLATIN. [Concomitant]
     Active Substance: CARBOPLATIN
     Indication: METASTASES TO SKIN
  27. NAVELBINE [Concomitant]
     Active Substance: VINORELBINE TARTRATE
     Indication: METASTASES TO CENTRAL NERVOUS SYSTEM
  28. ERIBULIN [Concomitant]
     Active Substance: ERIBULIN
     Indication: METASTASES TO BONE

REACTIONS (2)
  - Dyspnoea [Unknown]
  - Pleural effusion [Unknown]
